FAERS Safety Report 8077016-X (Version None)
Quarter: 2012Q1

REPORT INFORMATION
  Report Type: 
  Country: None (occurrence: None)
  Receive Date: 20120127
  Receipt Date: 20120119
  Transmission Date: 20120608
  Serious: Yes (Other)
  Sender: FDA-Public Use
  Company Number: PHHY2012FR005154

PATIENT

DRUGS (1)
  1. ALISKIREN [Suspect]

REACTIONS (1)
  - NERVOUS SYSTEM DISORDER [None]
